FAERS Safety Report 6640888-7 (Version None)
Quarter: 2010Q1

REPORT INFORMATION
  Report Type: 
  Country: None (occurrence: None)
  Receive Date: 20100318
  Receipt Date: 20100304
  Transmission Date: 20100710
  Serious: Yes (Hospitalization)
  Sender: FDA-Public Use
  Company Number: US-ELI_LILLY_AND_COMPANY-US201003002487

PATIENT
  Sex: Female

DRUGS (1)
  1. FORTEO [Suspect]
     Indication: OSTEOPOROSIS
     Dosage: 20 UG, UNK
     Dates: start: 20090101, end: 20100211

REACTIONS (5)
  - CONTUSION [None]
  - FALL [None]
  - PAIN [None]
  - PNEUMOTHORAX TRAUMATIC [None]
  - RIB FRACTURE [None]
